FAERS Safety Report 24227211 (Version 2)
Quarter: 2024Q3

REPORT INFORMATION
  Report Type: Spontaneous
  Country: GB (occurrence: GB)
  Receive Date: 20240820
  Receipt Date: 20240820
  Transmission Date: 20241017
  Serious: Yes (Hospitalization, Other)
  Sender: TORRENT
  Company Number: GB-MLMSERVICE-20240802-PI151487-00330-1

PATIENT
  Age: 26 Year
  Sex: Female

DRUGS (1)
  1. VENLAFAXINE [Suspect]
     Active Substance: VENLAFAXINE HYDROCHLORIDE
     Indication: Childhood depression
     Dosage: PROLONGED RELEASE (XL)
     Route: 065
     Dates: start: 2023, end: 202308

REACTIONS (15)
  - Antidepressant discontinuation syndrome [Recovering/Resolving]
  - Hypoglycaemia [Recovering/Resolving]
  - Tinnitus [Recovering/Resolving]
  - Headache [Recovering/Resolving]
  - Hypophagia [Recovering/Resolving]
  - Malnutrition [Recovering/Resolving]
  - Body mass index decreased [Recovering/Resolving]
  - Abdominal distension [Recovering/Resolving]
  - Dizziness [Recovering/Resolving]
  - Gastrointestinal disorder [Recovering/Resolving]
  - Nausea [Recovering/Resolving]
  - Electric shock sensation [Recovering/Resolving]
  - Abdominal distension [Recovering/Resolving]
  - Vomiting [Recovering/Resolving]
  - Weight decreased [Recovering/Resolving]

NARRATIVE: CASE EVENT DATE: 20230101
